FAERS Safety Report 11391195 (Version 2)
Quarter: 2015Q3

REPORT INFORMATION
  Report Type: Report from Study
  Country: ES (occurrence: ES)
  Receive Date: 20150818
  Receipt Date: 20150819
  Transmission Date: 20151125
  Serious: Yes (Other)
  Sender: FDA-Public Use
  Company Number: ES-JNJFOC-20150808598

PATIENT
  Age: 51 Year
  Sex: Male
  Weight: 110 kg

DRUGS (5)
  1. ATORVASTATINA [Concomitant]
     Active Substance: ATORVASTATIN
     Route: 065
     Dates: start: 20121220
  2. TRIMETHOPRIM. [Concomitant]
     Active Substance: TRIMETHOPRIM
     Route: 065
     Dates: start: 20110501
  3. TENORMIN [Concomitant]
     Active Substance: ATENOLOL
     Route: 065
     Dates: start: 20110501
  4. SULFAMETOXAZOL [Concomitant]
     Route: 065
     Dates: start: 20110501
  5. RILPIVIRINE [Suspect]
     Active Substance: RILPIVIRINE
     Indication: HIV INFECTION
     Route: 048
     Dates: start: 20150610, end: 20150717

REACTIONS (1)
  - Hepatitis acute [Recovered/Resolved]

NARRATIVE: CASE EVENT DATE: 20150714
